FAERS Safety Report 4456787-5 (Version None)
Quarter: 2004Q3

REPORT INFORMATION
  Report Type: 
  Country: None (occurrence: None)
  Receive Date: 20040923
  Receipt Date: 20040915
  Transmission Date: 20050211
  Serious: Yes (Hospitalization)
  Sender: FDA-Public Use
  Company Number: PHEH2004US09951

PATIENT
  Age: 83 Year
  Sex: Male

DRUGS (20)
  1. EXELON [Suspect]
     Indication: DEMENTIA ALZHEIMER'S TYPE
     Dosage: 12 MG, BID
     Route: 048
     Dates: end: 20040601
  2. EXELON [Suspect]
     Dosage: 6 MG, BID
     Route: 048
     Dates: start: 20040701
  3. MEMANTINE HCL [Suspect]
     Indication: DEMENTIA ALZHEIMER'S TYPE
     Dosage: 10 MG, BID
     Route: 048
     Dates: start: 20040601
  4. CELEXA [Suspect]
     Indication: DEPRESSION
     Dosage: 20 MG, QD
     Route: 048
     Dates: end: 20040601
  5. CELEXA [Suspect]
     Dosage: 20 MG, QD
     Route: 048
     Dates: start: 20040601
  6. ELAVIL [Concomitant]
     Dosage: 25 MG, UNK
  7. XANAX [Concomitant]
     Dosage: .25 MG, UNK
  8. INSULIN [Concomitant]
  9. ATENOLOL [Concomitant]
     Dosage: 50 MG, UNK
  10. ATACAND [Concomitant]
     Dosage: 160 MG, UNK
  11. ZOCOR [Concomitant]
     Dosage: 40 MG, UNK
  12. PLAVIX [Concomitant]
     Dosage: 75 MG, UNK
  13. SYNTHROID [Concomitant]
     Dosage: 175 UG, UNK
  14. PROTONIX [Concomitant]
     Dosage: 40 MG, UNK
  15. UNIPHYL [Concomitant]
     Dosage: 600 MG, UNK
  16. COMBIVENT [Concomitant]
     Dosage: 2 PUFFS
  17. ADVAIR DISKUS 100/50 [Concomitant]
     Dosage: 2 PUFFS
  18. COSOPT [Concomitant]
     Dosage: 2 GTT, UNK
  19. XALATAN [Concomitant]
     Dosage: 1 GTT, UNK
  20. ASPIRIN [Concomitant]
     Dosage: 325 MG, UNK

REACTIONS (12)
  - AGGRESSION [None]
  - ASPARTATE AMINOTRANSFERASE DECREASED [None]
  - BLOOD ALKALINE PHOSPHATASE INCREASED [None]
  - HYPOGLYCAEMIA [None]
  - INCOHERENT [None]
  - MENTAL STATUS CHANGES [None]
  - METABOLIC ENCEPHALOPATHY [None]
  - NUCLEAR MAGNETIC RESONANCE IMAGING BRAIN ABNORMAL [None]
  - PARANOIA [None]
  - PSYCHOTIC DISORDER [None]
  - SINUS BRADYCARDIA [None]
  - WHITE BLOOD CELL COUNT INCREASED [None]
